FAERS Safety Report 4995211-0 (Version None)
Quarter: 2006Q2

REPORT INFORMATION
  Report Type: 
  Country: None (occurrence: None)
  Receive Date: 20060508
  Receipt Date: 20050930
  Transmission Date: 20061013
  Serious: Yes (Hospitalization)
  Sender: FDA-Public Use
  Company Number: US-MERCK-0510USA00994

PATIENT
  Age: 47 Year
  Sex: Male
  Weight: 184 kg

DRUGS (1)
  1. VIOXX [Suspect]
     Indication: ARTHRITIS
     Route: 048
     Dates: start: 20041129, end: 20041223

REACTIONS (8)
  - BLOOD PRESSURE INCREASED [None]
  - CARDIAC FAILURE CONGESTIVE [None]
  - DYSPNOEA [None]
  - HEADACHE [None]
  - HYPOKALAEMIA [None]
  - PRODUCTIVE COUGH [None]
  - TREATMENT NONCOMPLIANCE [None]
  - WEIGHT INCREASED [None]
